FAERS Safety Report 4592575-7 (Version None)
Quarter: 2005Q1

REPORT INFORMATION
  Report Type: 
  Country: None (occurrence: None)
  Receive Date: 20050228
  Receipt Date: 20050218
  Transmission Date: 20050727
  Serious: Yes (Hospitalization)
  Sender: FDA-Public Use
  Company Number: 200510614FR

PATIENT
  Age: 78 Year
  Sex: Male
  Weight: 80 kg

DRUGS (9)
  1. LASILIX [Suspect]
     Route: 048
  2. PYOSTACINE [Suspect]
     Route: 048
     Dates: start: 20041109, end: 20041124
  3. COUMADIN [Suspect]
     Route: 048
  4. ARANESP [Suspect]
     Route: 058
  5. TRACLEER [Suspect]
     Route: 048
     Dates: start: 20030101
  6. AMLOR [Suspect]
     Route: 048
  7. OXYGEN THERAPY [Concomitant]
  8. TARDYFERON [Concomitant]
  9. LANTUS [Concomitant]

REACTIONS (11)
  - ACUTE PULMONARY OEDEMA [None]
  - ANAEMIA [None]
  - CONDITION AGGRAVATED [None]
  - ERYTHEMA [None]
  - FLUID RETENTION [None]
  - GENERALISED OEDEMA [None]
  - HAEMODIALYSIS [None]
  - OEDEMA PERIPHERAL [None]
  - RENAL FAILURE ACUTE [None]
  - SODIUM RETENTION [None]
  - WEIGHT INCREASED [None]
